FAERS Safety Report 8848580 (Version 1)
Quarter: 2012Q4

REPORT INFORMATION
  Report Type: 
  Country: ES (occurrence: ES)
  Receive Date: 20121018
  Receipt Date: 20121018
  Transmission Date: 20130627
  Serious: Yes (Hospitalization)
  Sender: FDA-Public Use
  Company Number: ES-GLAXOSMITHKLINE-B0838377A

PATIENT
  Age: 62 Year
  Sex: Male

DRUGS (2)
  1. NIZATIDINE [Suspect]
     Indication: PRODUCT USED FOR UNKNOWN INDICATION
     Route: 065
  2. DICLOFENAC [Concomitant]
     Dosage: 1TAB per day

REACTIONS (9)
  - Anaphylactic reaction [Unknown]
  - Angioedema [Unknown]
  - Loss of consciousness [Unknown]
  - Pruritus [Unknown]
  - Urticaria [Unknown]
  - Hypotension [Unknown]
  - Dizziness [Unknown]
  - Generalised erythema [Unknown]
  - Conjunctival hyperaemia [Unknown]
